FAERS Safety Report 17105740 (Version 2)
Quarter: 2019Q4

REPORT INFORMATION
  Report Type: Spontaneous
  Country: CN (occurrence: CN)
  Receive Date: 20191203
  Receipt Date: 20191204
  Transmission Date: 20200122
  Serious: Yes (Life-Threatening, Other)
  Sender: FDA-Public Use
  Company Number: CN-009507513-1911CHN012278

PATIENT
  Age: 38 Year
  Sex: Female
  Weight: 75 kg

DRUGS (2)
  1. SODIUM CHLORIDE. [Concomitant]
     Active Substance: SODIUM CHLORIDE
     Dosage: 100 MILLILITER
     Dates: start: 20190815, end: 20190816
  2. INVANZ [Suspect]
     Active Substance: ERTAPENEM SODIUM
     Indication: INFECTION
     Dosage: 1 GRAM, QD
     Route: 042
     Dates: start: 20190815, end: 20190816

REACTIONS (10)
  - Conjunctival oedema [Recovering/Resolving]
  - Blood lactic acid increased [Recovering/Resolving]
  - Haemoglobin decreased [Recovering/Resolving]
  - Blood pH decreased [Recovering/Resolving]
  - Blood bicarbonate decreased [Recovering/Resolving]
  - Exophthalmos [Recovering/Resolving]
  - Conjunctival hyperaemia [Recovering/Resolving]
  - Blood sodium decreased [Recovering/Resolving]
  - PO2 increased [Recovering/Resolving]
  - Epilepsy [Recovering/Resolving]

NARRATIVE: CASE EVENT DATE: 20190816
